FAERS Safety Report 12728700 (Version 2)
Quarter: 2016Q3

REPORT INFORMATION
  Report Type: Report from Study
  Country: GB (occurrence: GB)
  Receive Date: 20160909
  Receipt Date: 20160922
  Transmission Date: 20161109
  Serious: Yes (Other)
  Sender: FDA-Public Use
  Company Number: GB-TEVA-690419ISR

PATIENT

DRUGS (2)
  1. ALLOPURINOL. [Suspect]
     Active Substance: ALLOPURINOL
     Indication: INFLAMMATORY BOWEL DISEASE
     Route: 065
  2. AZATHIOPRINE. [Suspect]
     Active Substance: AZATHIOPRINE
     Indication: INFLAMMATORY BOWEL DISEASE
     Dosage: DOSE WAS REDUCED TO 25% OF THE WEIGHT BASED MONOTHERAPY EQUIVALENT, ADJUSTED FOR TPMT STATUS
     Route: 065

REACTIONS (2)
  - Accidental exposure to product [Unknown]
  - Pancreatitis [Unknown]
